FAERS Safety Report 4657418-1 (Version None)
Quarter: 2005Q2

REPORT INFORMATION
  Report Type: 
  Country: None (occurrence: None)
  Receive Date: 20050510
  Receipt Date: 20050429
  Transmission Date: 20051028
  Serious: Yes (Other)
  Sender: FDA-Public Use
  Company Number: US-JNJFOC-20050104544

PATIENT
  Sex: Female
  Weight: 59.42 kg

DRUGS (8)
  1. REMICADE [Suspect]
     Dosage: 3MG TO 7.5MG/KG.
     Route: 042
  2. REMICADE [Suspect]
     Route: 042
  3. REMICADE [Suspect]
     Indication: RHEUMATOID ARTHRITIS
     Route: 042
  4. METHOTREXATE [Concomitant]
     Indication: RHEUMATOID ARTHRITIS
     Route: 049
  5. METHOTREXATE [Concomitant]
     Indication: INFLAMMATION
     Dosage: ON FOR 13 YEARS WITH THE LAST DOSE NOV OR DEC 2004.
     Route: 049
  6. CALCIUM GLUCONATE [Concomitant]
  7. FOLIC ACID [Concomitant]
  8. VITAMINS [Concomitant]

REACTIONS (3)
  - LYMPHADENOPATHY [None]
  - LYMPHOMA [None]
  - SYNOVITIS [None]
